FAERS Safety Report 14701673 (Version 1)
Quarter: 2018Q1

REPORT INFORMATION
  Report Type: Spontaneous
  Country: GB (occurrence: GB)
  Receive Date: 20180331
  Receipt Date: 20180331
  Transmission Date: 20180509
  Serious: Yes (Hospitalization)
  Sender: FDA-Public Use
  Company Number: GB-009507513-1803GBR012719

PATIENT
  Age: 80 Year
  Sex: Male
  Weight: 69.8 kg

DRUGS (2)
  1. PEMBROLIZUMAB. [Suspect]
     Active Substance: PEMBROLIZUMAB
     Indication: NON-SMALL CELL LUNG CANCER
     Dosage: 200 MG, UNK
     Route: 042
     Dates: start: 20180219
  2. APIXABAN [Concomitant]
     Active Substance: APIXABAN

REACTIONS (2)
  - Delirium [Recovered/Resolved with Sequelae]
  - Confusional state [Unknown]

NARRATIVE: CASE EVENT DATE: 20180221
